FAERS Safety Report 4437301-7 (Version None)
Quarter: 2004Q3

REPORT INFORMATION
  Report Type: 
  Country: None (occurrence: None)
  Receive Date: 20040726
  Receipt Date: 20040413
  Transmission Date: 20050211
  Serious: No
  Sender: FDA-Public Use
  Company Number: USA040363158

PATIENT
  Age: 79 Year
  Sex: Female

DRUGS (1)
  1. FORTEO [Suspect]
     Dates: start: 20040317

REACTIONS (6)
  - ANXIETY [None]
  - DIZZINESS [None]
  - INSOMNIA [None]
  - MUSCLE TIGHTNESS [None]
  - POLLAKIURIA [None]
  - STRESS SYMPTOMS [None]
